FAERS Safety Report 4509329-X (Version None)
Quarter: 2004Q4

REPORT INFORMATION
  Report Type: 
  Country: None (occurrence: None)
  Receive Date: 20041025
  Receipt Date: 20040806
  Transmission Date: 20050328
  Serious: Yes (Hospitalization)
  Sender: FDA-Public Use
  Company Number: US-JNJFOC-20040802538

PATIENT
  Age: 80 Year
  Sex: Female
  Weight: 57.6068 kg

DRUGS (8)
  1. INFLIXMAB (INFLIXIMAB, RECOMBINANT) LYOPHILIZED POWDER [Suspect]
     Indication: RHEUMATOID ARTHRITIS
     Dosage: INTRAVENOUS
     Route: 042
     Dates: start: 20010221, end: 20010701
  2. METHOTREXATE SODIUM [Concomitant]
  3. FOLIC ACID [Concomitant]
  4. CALCIUM (CALCIUM) [Concomitant]
  5. RESTORIL [Concomitant]
  6. PROZAC [Concomitant]
  7. ADVIL [Concomitant]
  8. ALEVE [Concomitant]

REACTIONS (1)
  - INTERSTITIAL LUNG DISEASE [None]
